FAERS Safety Report 19551353 (Version 1)
Quarter: 2021Q3

REPORT INFORMATION
  Report Type: Spontaneous
  Country: US (occurrence: US)
  Receive Date: 20210715
  Receipt Date: 20210715
  Transmission Date: 20211014
  Serious: No
  Sender: FDA-Public Use
  Company Number: NVSC2021US157306

PATIENT

DRUGS (1)
  1. VOLTAREN [Suspect]
     Active Substance: DICLOFENAC SODIUM
     Indication: ARTHRALGIA
     Dosage: 3 DF, QD, UNK UNK QID
     Route: 065
     Dates: start: 20210620

REACTIONS (4)
  - Application site dryness [Unknown]
  - Drug ineffective [Unknown]
  - Skin exfoliation [Unknown]
  - Off label use [Unknown]
